FAERS Safety Report 12495982 (Version 6)
Quarter: 2016Q4

REPORT INFORMATION
  Report Type: Spontaneous
  Country: BR (occurrence: BR)
  Receive Date: 20160624
  Receipt Date: 20161021
  Transmission Date: 20170207
  Serious: Yes (Other)
  Sender: FDA-Public Use
  Company Number: BR-REGENERON PHARMACEUTICALS, INC.-2016-18569

PATIENT

DRUGS (5)
  1. POVIDONE [Concomitant]
     Active Substance: POVIDONE
     Indication: INFECTION PROPHYLAXIS
     Route: 047
  2. EYLEA [Suspect]
     Active Substance: AFLIBERCEPT
     Indication: DIABETIC RETINAL OEDEMA
     Dosage: RIGHT EYE
     Route: 031
  3. EYLEA [Interacting]
     Active Substance: AFLIBERCEPT
     Dosage: UNK (LAST INJECTION PRIOR TO THE EVENT, TOTAL OF 11 INJECTIONS)
     Route: 031
     Dates: start: 20160609, end: 20160609
  4. VIGAMOX [Concomitant]
     Active Substance: MOXIFLOXACIN HYDROCHLORIDE
     Indication: ANTIBIOTIC PROPHYLAXIS
  5. EYLEA [Interacting]
     Active Substance: AFLIBERCEPT
     Dosage: RIGHT EYE
     Route: 031
     Dates: start: 20160518

REACTIONS (7)
  - Uveitis [Recovered/Resolved]
  - Eye operation complication [Unknown]
  - Multiple use of single-use product [Recovered/Resolved]
  - Off label use [Unknown]
  - Drug interaction [Unknown]
  - Vitritis [Recovered/Resolved]
  - Syringe issue [Unknown]

NARRATIVE: CASE EVENT DATE: 20160611
